FAERS Safety Report 15147666 (Version 2)
Quarter: 2018Q3

REPORT INFORMATION
  Report Type: Spontaneous
  Country: US (occurrence: US)
  Receive Date: 20180716
  Receipt Date: 20180716
  Transmission Date: 20181010
  Serious: No
  Sender: FDA-Public Use
  Company Number: US-PFIZER INC-2018282113

PATIENT

DRUGS (2)
  1. GLUCOSE [Suspect]
     Active Substance: DEXTROSE
     Dosage: UNK
     Route: 042
  2. DEXTRAN [Suspect]
     Active Substance: DEXTRAN
     Dosage: UNK
     Route: 042

REACTIONS (1)
  - Drug hypersensitivity [Unknown]
